FAERS Safety Report 5584642-6 (Version None)
Quarter: 2008Q1

REPORT INFORMATION
  Report Type: 
  Country: None (occurrence: None)
  Receive Date: 20080103
  Receipt Date: 20071221
  Transmission Date: 20080703
  Serious: Yes (Life-Threatening)
  Sender: FDA-Public Use
  Company Number: 062-20785-07121451

PATIENT
  Age: 76 Year
  Sex: Female

DRUGS (1)
  1. THALOMID [Suspect]
     Indication: PLASMACYTOMA
     Dosage: 200 MG, QD, ORAL
     Route: 048
     Dates: start: 20031001

REACTIONS (2)
  - GENERAL PHYSICAL HEALTH DETERIORATION [None]
  - LERICHE SYNDROME [None]
